FAERS Safety Report 21996474 (Version 6)
Quarter: 2023Q4

REPORT INFORMATION
  Report Type: Spontaneous
  Country: US (occurrence: US)
  Receive Date: 20230215
  Receipt Date: 20231115
  Transmission Date: 20240110
  Serious: Yes (Hospitalization, Other)
  Sender: FDA-Public Use
  Company Number: US-BRISTOL-MYERS SQUIBB COMPANY-2023-022614

PATIENT
  Age: 77 Year
  Sex: Female

DRUGS (6)
  1. LENALIDOMIDE [Suspect]
     Active Substance: LENALIDOMIDE
     Indication: Plasma cell myeloma
     Route: 048
  2. LENALIDOMIDE [Suspect]
     Active Substance: LENALIDOMIDE
     Dosage: TAKE 1 CAPSULE BY MOUTH ON MON, WED AND FRI ON DAYS 1-21 THEN 7 DAYS OFF
     Route: 048
     Dates: start: 20221110
  3. LENALIDOMIDE [Suspect]
     Active Substance: LENALIDOMIDE
     Dosage: MONDAY,WEDNESDAY, AND FRIDAY FOR 3 WEEKS ON AND 1 WEEK OFF.
     Route: 048
     Dates: start: 20221207
  4. LENALIDOMIDE [Suspect]
     Active Substance: LENALIDOMIDE
     Dosage: TAKE 1 CAPSULE 5MGX 21 DAYS WITH A 7 DAYS BREAK
     Route: 048
     Dates: start: 20221214
  5. LENALIDOMIDE [Suspect]
     Active Substance: LENALIDOMIDE
     Dosage: TAKE 1 CAPSULE BY MOUTH ON MON, WED AND FRI ON DAYS 1-21 THEN 7 DAYS OFF
     Route: 048
     Dates: start: 20230517
  6. ASPIRIN [Suspect]
     Active Substance: ASPIRIN
     Indication: Product used for unknown indication

REACTIONS (13)
  - White blood cell count decreased [Recovered/Resolved]
  - Influenza [Recovered/Resolved]
  - Cystitis [Recovered/Resolved]
  - Bacteraemia [Recovered/Resolved]
  - Laboratory test abnormal [Unknown]
  - Off label use [Unknown]
  - Drug ineffective [Unknown]
  - Diabetes mellitus [Unknown]
  - Hypertension [Unknown]
  - Cerebrovascular accident [Unknown]
  - Fatigue [Unknown]
  - Somnolence [Unknown]
  - Diarrhoea [Unknown]
